FAERS Safety Report 10052931 (Version 2)
Quarter: 2016Q1

REPORT INFORMATION
  Report Type: Spontaneous
  Country: FR (occurrence: FR)
  Receive Date: 20140402
  Receipt Date: 20160205
  Transmission Date: 20160525
  Serious: Yes (Other)
  Sender: FDA-Public Use
  Company Number: FR-BRISTOL-MYERS SQUIBB COMPANY-20566014

PATIENT
  Age: 34 Year
  Sex: Male

DRUGS (2)
  1. ABILIFY [Suspect]
     Active Substance: ARIPIPRAZOLE
     Indication: PSYCHOTIC DISORDER
     Dosage: 15 MG, QD
     Route: 048
     Dates: start: 200806, end: 20131003
  2. RISPERIDONE. [Suspect]
     Active Substance: RISPERIDONE
     Indication: PSYCHOTIC DISORDER
     Dosage: 8 MG, QD
     Route: 065
     Dates: start: 200806

REACTIONS (3)
  - Persecutory delusion [Recovering/Resolving]
  - Off label use [Unknown]
  - Anxiety [Recovering/Resolving]
